FAERS Safety Report 9198395 (Version 2)
Quarter: 2013Q2

REPORT INFORMATION
  Report Type: Spontaneous
  Country: FR (occurrence: FR)
  Receive Date: 20130329
  Receipt Date: 20130418
  Transmission Date: 20140414
  Serious: Yes (Death)
  Sender: FDA-Public Use
  Company Number: FR-AMGEN-FRASP2013020983

PATIENT
  Age: 79 Year
  Sex: Female

DRUGS (3)
  1. NPLATE [Suspect]
     Indication: THROMBOCYTOPENIA
     Dosage: 100 MUG, QWK
     Route: 058
     Dates: start: 201103, end: 201211
  2. ENDOXAN                            /00021101/ [Concomitant]
     Dosage: UNK
     Dates: start: 2007
  3. BENDAMUSTINE [Concomitant]

REACTIONS (2)
  - Acute myeloid leukaemia [Fatal]
  - Leukaemia [Fatal]
